FAERS Safety Report 24551195 (Version 1)
Quarter: 2024Q4

REPORT INFORMATION
  Report Type: Spontaneous
  Country: US (occurrence: US)
  Receive Date: 20241025
  Receipt Date: 20241025
  Transmission Date: 20250114
  Serious: Yes (Other)
  Sender: MALLINCKRODT
  Company Number: US-MALLINCKRODT-MNK202406346

PATIENT
  Age: 35 Year
  Sex: Male

DRUGS (11)
  1. CORTICOTROPIN [Suspect]
     Active Substance: CORTICOTROPIN
     Indication: Sarcoidosis
     Route: 030
     Dates: start: 202101
  2. VILAZODONE [Concomitant]
     Active Substance: VILAZODONE
     Dosage: UNKNOWN
  3. ALPRAZOLAM [Concomitant]
     Active Substance: ALPRAZOLAM
     Dosage: UNKNOWN
  4. MIRTAZAPINE [Concomitant]
     Active Substance: MIRTAZAPINE
     Dosage: UNKNOWN
  5. DESVENLAFAXINE [Concomitant]
     Active Substance: DESVENLAFAXINE
     Dosage: UNKNOWN
  6. LIDOCAINE [Concomitant]
     Active Substance: LIDOCAINE
     Dosage: UNKNOWN
  7. DICYCLOMINE [Concomitant]
     Active Substance: DICYCLOMINE HYDROCHLORIDE
     Dosage: UNKNOWN
  8. PROPRANOLOL [Concomitant]
     Active Substance: PROPRANOLOL HYDROCHLORIDE
     Dosage: UNKNOWN
  9. HYDROCODONE BITARTRATE AND ACETAMINOPHEN [Concomitant]
     Active Substance: ACETAMINOPHEN\HYDROCODONE BITARTRATE
     Dosage: UNKNOWN
     Dates: start: 20241008
  10. NAPROXEN [Concomitant]
     Active Substance: NAPROXEN
     Dosage: UNKNOWN
     Dates: start: 20241008
  11. CYCLOBENZAPRINE [Concomitant]
     Active Substance: CYCLOBENZAPRINE
     Dosage: UNKNOWN
     Dates: start: 20241008

REACTIONS (2)
  - Road traffic accident [Unknown]
  - Clavicle fracture [Not Recovered/Not Resolved]

NARRATIVE: CASE EVENT DATE: 20241005
